FAERS Safety Report 15180992 (Version 2)
Quarter: 2018Q3

REPORT INFORMATION
  Report Type: Report from Study
  Country: DE (occurrence: DE)
  Receive Date: 20180723
  Receipt Date: 20180904
  Transmission Date: 20181010
  Serious: Yes (Hospitalization)
  Sender: FDA-Public Use
  Company Number: DE-CELGENEUS-DEU-20180703858

PATIENT
  Age: 56 Year
  Sex: Female
  Weight: 97 kg

DRUGS (1)
  1. AZACITIDINE. [Suspect]
     Active Substance: AZACITIDINE
     Indication: PRODUCT USED FOR UNKNOWN INDICATION
     Dosage: 165 MILLIGRAM
     Route: 065
     Dates: start: 20170221

REACTIONS (1)
  - Adenocarcinoma of colon [Recovered/Resolved]

NARRATIVE: CASE EVENT DATE: 20180706
